FAERS Safety Report 15326888 (Version 1)
Quarter: 2018Q3

REPORT INFORMATION
  Report Type: Spontaneous
  Country: US (occurrence: US)
  Receive Date: 20180823
  Receipt Date: 20180823
  Transmission Date: 20181010
  Serious: No
  Sender: FDA-Public Use
  Company Number: None

PATIENT
  Age: 63 Year
  Sex: Female
  Weight: 140.61 kg

DRUGS (20)
  1. VERAPAMIL [Concomitant]
     Active Substance: VERAPAMIL HYDROCHLORIDE
  2. SELENIUM [Concomitant]
     Active Substance: SELENIUM
  3. TRIPLE STRENGTH FISH OIL [Concomitant]
  4. VALSARTAN 160MG [Suspect]
     Active Substance: VALSARTAN
     Dosage: ?          QUANTITY:1 DF DOSAGE FORM;?
     Route: 048
  5. LOSARTAN. [Concomitant]
     Active Substance: LOSARTAN
  6. POTASSIUM CHLORIDE ER (K?DUR, KLORCON) [Concomitant]
  7. CHROMIUM PICOLINATE [Concomitant]
     Active Substance: CHROMIUM PICOLINATE
  8. ZINC. [Concomitant]
     Active Substance: ZINC
  9. COZAAR [Concomitant]
     Active Substance: LOSARTAN POTASSIUM
  10. CHLORTHALIDONE. [Concomitant]
     Active Substance: CHLORTHALIDONE
  11. MAGNESIUM [Concomitant]
     Active Substance: MAGNESIUM
  12. VITAMIN D3 [Concomitant]
     Active Substance: CHOLECALCIFEROL
  13. CHOLORTHALIDONE [Concomitant]
  14. CALAN SR, ISOPTIN [Concomitant]
  15. BIOTIN [Concomitant]
     Active Substance: BIOTIN
  16. VITAMIN B12 [Concomitant]
     Active Substance: CYANOCOBALAMIN
  17. CARDURA [Concomitant]
     Active Substance: DOXAZOSIN MESYLATE
  18. NIFEDIPINE 60MG [Suspect]
     Active Substance: NIFEDIPINE
     Indication: HYPERTENSION
     Dosage: ?          QUANTITY:1 DF DOSAGE FORM;?
     Route: 048
     Dates: start: 20180703, end: 20180704
  19. DOXAZOSIN [Concomitant]
     Active Substance: DOXAZOSIN\DOXAZOSIN MESYLATE
  20. FOLIC ACID. [Concomitant]
     Active Substance: FOLIC ACID

REACTIONS (4)
  - Renal pain [None]
  - Headache [None]
  - Peripheral swelling [None]
  - Palpitations [None]

NARRATIVE: CASE EVENT DATE: 20180703
